FAERS Safety Report 12754718 (Version 2)
Quarter: 2016Q4

REPORT INFORMATION
  Report Type: Spontaneous
  Country: US (occurrence: US)
  Receive Date: 20160915
  Receipt Date: 20161103
  Transmission Date: 20170207
  Serious: No
  Sender: FDA-Public Use
  Company Number: GXBR2016US002836

PATIENT
  Sex: Male
  Weight: 140.59 kg

DRUGS (1)
  1. ZARXIO [Suspect]
     Active Substance: FILGRASTIM-SNDZ
     Indication: PLASMA CELL MYELOMA
     Dosage: 48 MCG/0.8ML DF, TID
     Route: 065

REACTIONS (1)
  - Incorrect dose administered by device [Unknown]
